FAERS Safety Report 8572278-4 (Version None)
Quarter: 2012Q3

REPORT INFORMATION
  Report Type: 
  Country: None (occurrence: None)
  Receive Date: 20120806
  Receipt Date: 20120731
  Transmission Date: 20120928
  Serious: No
  Sender: FDA-Public Use
  Company Number: US-PFIZER INC-2012185963

PATIENT
  Age: 68 Year
  Sex: Female

DRUGS (6)
  1. ACETAMINOPHEN [Concomitant]
     Indication: PAIN
     Dosage: 650 MG, AS NEEDED
  2. OXYCONTIN [Concomitant]
     Indication: PAIN
     Dosage: 5 MG, 1X/DAY
  3. VITAMIN D [Concomitant]
     Dosage: UNK
  4. LYRICA [Suspect]
     Indication: PAIN
     Dosage: 75 MG, 2X/DAY
     Route: 048
     Dates: start: 20120601, end: 20120731
  5. LISINOPRIL [Concomitant]
     Indication: HYPERTENSION
     Dosage: 20 MG, UNK
  6. SIMVASTATIN [Concomitant]
     Indication: BLOOD CHOLESTEROL INCREASED
     Dosage: 40 MG, UNK

REACTIONS (5)
  - LOCAL SWELLING [None]
  - DYSPHAGIA [None]
  - PHARYNGEAL OEDEMA [None]
  - SKIN INFECTION [None]
  - BLOOD PRESSURE DECREASED [None]
